FAERS Safety Report 5199145-0 (Version None)
Quarter: 2006Q4

REPORT INFORMATION
  Report Type: 
  Country: None (occurrence: None)
  Receive Date: 20061016
  Receipt Date: 20060626
  Transmission Date: 20070319
  Serious: No
  Sender: FDA-Public Use
  Company Number: 2006SP002326

PATIENT
  Age: 73 Year
  Sex: Male
  Weight: 103.4201 kg

DRUGS (7)
  1. LUNESTA [Suspect]
     Indication: INSOMNIA
     Dosage: 2 MG;ORAL
     Route: 048
     Dates: start: 20060501
  2. LORTAB [Concomitant]
  3. PLAVIX [Concomitant]
  4. LASIX [Concomitant]
  5. SIMVASTATIN [Concomitant]
  6. METOCLOPRAMIDE [Concomitant]
  7. XANAX [Concomitant]

REACTIONS (1)
  - INSOMNIA [None]
